FAERS Safety Report 18577574 (Version 6)
Quarter: 2021Q4

REPORT INFORMATION
  Report Type: Other
  Country: BG (occurrence: None)
  Receive Date: 20201203
  Receipt Date: 20211221
  Transmission Date: 20220303
  Serious: Yes (Hospitalization)
  Sender: FDA-Public Use
  Company Number: BG-ROCHE-2713411

PATIENT
  Age: 27 Year
  Sex: Male
  Weight: 65 kg

DRUGS (20)
  1. OCRELIZUMAB [Suspect]
     Active Substance: OCRELIZUMAB
     Indication: Multiple sclerosis
     Dosage: 300 MG/250 ML?300 MG AT DAY 0 AND 14, THEN 600 MG IN 6 MONTHS
     Route: 042
     Dates: start: 20200312, end: 20200312
  2. OCRELIZUMAB [Suspect]
     Active Substance: OCRELIZUMAB
     Dosage: 300 MG/250 ML
     Route: 042
     Dates: start: 20200327, end: 20200327
  3. OCRELIZUMAB [Suspect]
     Active Substance: OCRELIZUMAB
     Dosage: 600 MG/500 ML
     Route: 042
     Dates: start: 20201002, end: 20201002
  4. OCRELIZUMAB [Suspect]
     Active Substance: OCRELIZUMAB
     Dosage: 600 MG/500 ML
     Route: 042
     Dates: start: 20210414, end: 20210414
  5. METHYLPREDNISOLONE [Concomitant]
     Active Substance: METHYLPREDNISOLONE
     Indication: Premedication
     Route: 042
     Dates: start: 20200312, end: 20200312
  6. METHYLPREDNISOLONE [Concomitant]
     Active Substance: METHYLPREDNISOLONE
     Route: 042
     Dates: start: 20200327, end: 20200327
  7. METHYLPREDNISOLONE [Concomitant]
     Active Substance: METHYLPREDNISOLONE
     Route: 042
     Dates: start: 20201002, end: 20201002
  8. METHYLPREDNISOLONE [Concomitant]
     Active Substance: METHYLPREDNISOLONE
     Route: 042
     Dates: start: 20210414, end: 20210414
  9. ACETAMINOPHEN [Concomitant]
     Active Substance: ACETAMINOPHEN
     Indication: Premedication
     Route: 048
     Dates: start: 20200312, end: 20200312
  10. ACETAMINOPHEN [Concomitant]
     Active Substance: ACETAMINOPHEN
     Route: 048
     Dates: start: 20200327, end: 20200327
  11. ACETAMINOPHEN [Concomitant]
     Active Substance: ACETAMINOPHEN
     Route: 048
     Dates: start: 20201002, end: 20201002
  12. ACETAMINOPHEN [Concomitant]
     Active Substance: ACETAMINOPHEN
     Route: 048
     Dates: start: 20210414, end: 20210414
  13. MANNITOL [Concomitant]
     Active Substance: MANNITOL
     Indication: Epilepsy
     Route: 042
     Dates: start: 20210113
  14. ASCORBIC ACID [Concomitant]
     Active Substance: ASCORBIC ACID
     Indication: Epilepsy
     Route: 048
     Dates: start: 20210113
  15. DEXAMETHASONE [Concomitant]
     Active Substance: DEXAMETHASONE
     Indication: Epilepsy
     Route: 042
     Dates: start: 20210113
  16. VALPROATE SODIUM [Concomitant]
     Active Substance: VALPROATE SODIUM
     Indication: Epilepsy
     Route: 048
     Dates: start: 20210113
  17. ACETAMINOPHEN [Concomitant]
     Active Substance: ACETAMINOPHEN
     Indication: Epilepsy
     Route: 042
     Dates: start: 20210113, end: 20210119
  18. NADROPARIN CALCIUM [Concomitant]
     Active Substance: NADROPARIN CALCIUM
     Indication: Epilepsy
     Route: 058
     Dates: start: 20210113, end: 20210119
  19. CORMAGNESIN [Concomitant]
     Indication: Epilepsy
     Route: 048
     Dates: start: 20210113, end: 20210119
  20. ALLERGOSAN (BULGARIA) [Concomitant]
     Indication: Premedication
     Route: 042
     Dates: start: 20200312, end: 20200312

REACTIONS (2)
  - Status epilepticus [Recovered/Resolved]
  - COVID-19 [Recovered/Resolved]

NARRATIVE: CASE EVENT DATE: 20201102
